FAERS Safety Report 18673951 (Version 4)
Quarter: 2025Q2

REPORT INFORMATION
  Report Type: Spontaneous
  Country: US (occurrence: US)
  Receive Date: 20201229
  Receipt Date: 20250513
  Transmission Date: 20250717
  Serious: No
  Sender: SANOFI AVENTIS
  Company Number: US-SA-2020SA372410

PATIENT
  Age: 64 Year
  Sex: Female

DRUGS (3)
  1. KEVZARA [Suspect]
     Active Substance: SARILUMAB
     Indication: Psoriasis
     Dosage: 200 MG, QOW
     Route: 058
     Dates: start: 20201014
  2. KEVZARA [Suspect]
     Active Substance: SARILUMAB
     Indication: Rheumatoid arthritis
  3. COVID-19 VACCINE [Concomitant]

REACTIONS (9)
  - Nausea [Unknown]
  - Pain [Unknown]
  - Rash erythematous [Unknown]
  - Dry skin [Not Recovered/Not Resolved]
  - Cough [Unknown]
  - Micturition urgency [Unknown]
  - Headache [Unknown]
  - Rash [Unknown]
  - Product use in unapproved indication [Unknown]

NARRATIVE: CASE EVENT DATE: 20200101
